FAERS Safety Report 9085081 (Version 1)
Quarter: 2013Q1

REPORT INFORMATION
  Report Type: Report from Study
  Country: US (occurrence: US)
  Receive Date: 20130131
  Receipt Date: 20130131
  Transmission Date: 20140127
  Serious: No
  Sender: FDA-Public Use
  Company Number: US-ABBOTT-12P-163-0978853-00

PATIENT
  Age: 43 Year
  Sex: Male

DRUGS (5)
  1. HUMIRA [Suspect]
     Indication: COLITIS ULCERATIVE
     Dosage: LOADING DOSE
     Dates: start: 20120827
  2. MTV [Concomitant]
     Indication: PRODUCT USED FOR UNKNOWN INDICATION
     Dosage: DAILY
  3. CHOLESTEROL MEDICATION [Concomitant]
     Indication: PRODUCT USED FOR UNKNOWN INDICATION
     Dosage: DAILY
  4. ALENDRONATE [Concomitant]
     Indication: BLOOD CALCIUM DECREASED
  5. KEPPRA [Concomitant]
     Indication: CONVULSION PROPHYLAXIS
     Dosage: DAILY

REACTIONS (5)
  - Decreased appetite [Not Recovered/Not Resolved]
  - Muscular weakness [Unknown]
  - Fatigue [Recovering/Resolving]
  - Haematochezia [Not Recovered/Not Resolved]
  - Nausea [Not Recovered/Not Resolved]
